FAERS Safety Report 5145263-2 (Version None)
Quarter: 2006Q4

REPORT INFORMATION
  Report Type: 
  Country: None (occurrence: None)
  Receive Date: 20060912
  Receipt Date: 20050729
  Transmission Date: 20070319
  Serious: Yes (Hospitalization, Disabling)
  Sender: FDA-Public Use
  Company Number: 2005-BP-11869BP

PATIENT
  Sex: Male
  Weight: 100.6 kg

DRUGS (8)
  1. VIRAMUNE [Suspect]
     Indication: HIV INFECTION
     Dosage: SEE IMAGE
     Route: 048
     Dates: end: 20020820
  2. VIRAMUNE [Suspect]
     Indication: HIV INFECTION
     Dosage: SEE IMAGE
     Route: 048
     Dates: start: 20020730
  3. VIREAD [Concomitant]
  4. EPIVIR [Concomitant]
  5. CELEXA [Concomitant]
  6. MIRAPEX [Concomitant]
  7. ATENOLOL [Concomitant]
  8. ANDROGEL [Concomitant]

REACTIONS (1)
  - STEVENS-JOHNSON SYNDROME [None]
